FAERS Safety Report 4953690-9 (Version None)
Quarter: 2006Q1

REPORT INFORMATION
  Report Type: 
  Country: None (occurrence: None)
  Receive Date: 20060324
  Receipt Date: 20051110
  Transmission Date: 20060701
  Serious: Yes (Hospitalization)
  Sender: FDA-Public Use
  Company Number: US-MERCK-0511USA02076

PATIENT
  Age: 49 Year
  Sex: Male
  Weight: 95 kg

DRUGS (13)
  1. VIOXX [Suspect]
     Indication: NECK INJURY
     Route: 048
     Dates: start: 20020506, end: 20021101
  2. VIOXX [Suspect]
     Indication: BACK INJURY
     Route: 048
     Dates: start: 20020506, end: 20021101
  3. ALTACE [Concomitant]
     Route: 065
  4. BISOPROLOL RATIOPHARM [Concomitant]
     Route: 065
  5. FLOMAX (MORNIFLUMATE) [Concomitant]
     Route: 065
  6. ISOSORBIDE MONONITRATE [Concomitant]
     Route: 065
  7. NITROGLYCERIN [Concomitant]
     Route: 065
  8. PREVACID [Concomitant]
     Route: 065
  9. SOMA [Concomitant]
     Route: 065
  10. TOBRADEX [Concomitant]
     Route: 065
  11. TOPROL-XL [Concomitant]
     Route: 065
  12. ZOCOR [Concomitant]
     Route: 065
  13. BEXTRA [Suspect]
     Route: 065

REACTIONS (14)
  - ABDOMINAL DISTENSION [None]
  - ACUTE MYOCARDIAL INFARCTION [None]
  - ANGINA PECTORIS [None]
  - ARTERIOSCLEROSIS [None]
  - BLOOD CHOLESTEROL INCREASED [None]
  - CARDIAC FAILURE CONGESTIVE [None]
  - CORONARY ARTERY DISEASE [None]
  - DIAPHRAGMATIC DISORDER [None]
  - DYSPNOEA [None]
  - HYPERTENSION [None]
  - MYOCARDIAL INFARCTION [None]
  - OEDEMA PERIPHERAL [None]
  - TACHYCARDIA [None]
  - VENTRICULAR HYPERTROPHY [None]
